FAERS Safety Report 9648214 (Version 1)
Quarter: 2013Q4

REPORT INFORMATION
  Report Type: Spontaneous
  Country: US (occurrence: None)
  Receive Date: 20131024
  Receipt Date: 20131024
  Transmission Date: 20140711
  Serious: Yes (Disabling)
  Sender: FDA-Public Use
  Company Number: None

PATIENT
  Age: 82 Year
  Sex: Female
  Weight: 47.63 kg

DRUGS (8)
  1. CIPROFLOXACIN HCL [Suspect]
     Dosage: 1 PILL; 2X DA
     Route: 048
     Dates: start: 20100601, end: 20100608
  2. LEVAQUIN [Suspect]
     Dosage: 1 PILL; 1 X DA
     Route: 048
     Dates: start: 20101109, end: 20101114
  3. ARMOUR THYROID [Concomitant]
  4. NEURONTIN [Concomitant]
  5. OMEGA 3 [Concomitant]
  6. COQ10 [Concomitant]
  7. VIT D [Concomitant]
  8. K-2 [Concomitant]

REACTIONS (4)
  - Ligament rupture [None]
  - Musculoskeletal pain [None]
  - Pain in extremity [None]
  - Atrial fibrillation [None]
